FAERS Safety Report 4946864-4 (Version None)
Quarter: 2006Q1

REPORT INFORMATION
  Report Type: 
  Country: None (occurrence: None)
  Receive Date: 20060317
  Receipt Date: 20060227
  Transmission Date: 20060701
  Serious: Yes (Hospitalization)
  Sender: FDA-Public Use
  Company Number: PHEH2006US02709

PATIENT
  Sex: Female

DRUGS (3)
  1. VIVELLE-DOT [Suspect]
     Indication: HORMONE REPLACEMENT THERAPY
     Dosage: 0.1 MG/DAY UP TO THREE PATCHES, UNK
     Route: 062
     Dates: start: 20000101
  2. LAMICTAL [Concomitant]
     Dates: end: 20060117
  3. SEROQUEL [Concomitant]
     Dates: start: 20060118

REACTIONS (9)
  - ANXIETY [None]
  - BLOOD OESTROGEN INCREASED [None]
  - BREAST CANCER [None]
  - HEADACHE [None]
  - HYSTERECTOMY [None]
  - MALIGNANT BREAST LUMP REMOVAL [None]
  - METRORRHAGIA [None]
  - MOOD SWINGS [None]
  - NAUSEA [None]
